FAERS Safety Report 5346584-0 (Version None)
Quarter: 2007Q2

REPORT INFORMATION
  Report Type: 
  Country: None (occurrence: None)
  Receive Date: 20070430
  Receipt Date: 20070323
  Transmission Date: 20071010
  Serious: No
  Sender: FDA-Public Use
  Company Number: 262034

PATIENT
  Age: 67 Year
  Sex: Female

DRUGS (4)
  1. LEVEMIR [Suspect]
     Indication: DIABETES MELLITUS
     Dosage: 18 IU, QD, SUBCUTANEOUS
     Route: 058
     Dates: start: 20061201
  2. VYTORIN [Concomitant]
  3. ASPIRIN [Concomitant]
  4. GLUCOTROL [Concomitant]

REACTIONS (2)
  - INJECTION SITE BRUISING [None]
  - INJECTION SITE PRURITUS [None]
